FAERS Safety Report 4965993-2 (Version None)
Quarter: 2006Q2

REPORT INFORMATION
  Report Type: 
  Country: None (occurrence: None)
  Receive Date: 20060407
  Receipt Date: 20060130
  Transmission Date: 20061013
  Serious: Yes (Life-Threatening, Hospitalization, Disabling, Other)
  Sender: FDA-Public Use
  Company Number: US-GLAXOSMITHKLINE-A0591500A

PATIENT
  Age: 37 Year
  Sex: Male
  Weight: 97.7 kg

DRUGS (4)
  1. TRIZIVIR [Suspect]
     Indication: HIV INFECTION
     Dosage: 1TAB TWICE PER DAY
     Route: 048
     Dates: start: 20060101
  2. XANAX [Concomitant]
  3. METHADONE HCL [Concomitant]
  4. ALCOHOL [Concomitant]

REACTIONS (8)
  - ANXIETY [None]
  - BLOOD GLUCOSE ABNORMAL [None]
  - COMA [None]
  - DIABETES MELLITUS NON-INSULIN-DEPENDENT [None]
  - OVERDOSE [None]
  - PARAESTHESIA [None]
  - RESPIRATORY ARREST [None]
  - SUICIDE ATTEMPT [None]
